FAERS Safety Report 9551303 (Version 2)
Quarter: 2013Q3

REPORT INFORMATION
  Report Type: Spontaneous
  Country: GB (occurrence: GB)
  Receive Date: 20130925
  Receipt Date: 20130925
  Transmission Date: 20140515
  Serious: Yes (Other)
  Sender: FDA-Public Use
  Company Number: GB-009507513-1308GBR011297

PATIENT
  Age: 46 Year
  Sex: Female

DRUGS (3)
  1. RIBAVIRIN [Suspect]
     Indication: HEPATITIS C
     Dosage: 2 IN 1 DAY
     Route: 048
     Dates: start: 20121203
  2. PEGINTERFERON ALFA-2B [Suspect]
     Indication: HEPATITIS C
     Dosage: 1 IN 1 WEEK
     Route: 058
     Dates: start: 20121203
  3. TELAPREVIR [Suspect]
     Indication: HEPATITIS C
     Dosage: 750 MG, TID
     Route: 048
     Dates: start: 20121203, end: 20130224

REACTIONS (6)
  - Oedema peripheral [Not Recovered/Not Resolved]
  - Rash [Recovered/Resolved]
  - Erythema [Not Recovered/Not Resolved]
  - Dry skin [Not Recovered/Not Resolved]
  - Haemoglobin decreased [Not Recovered/Not Resolved]
  - Oral mucosal blistering [Not Recovered/Not Resolved]
